FAERS Safety Report 24390989 (Version 1)
Quarter: 2024Q4

REPORT INFORMATION
  Report Type: Report from Study
  Country: US (occurrence: US)
  Receive Date: 20241003
  Receipt Date: 20241003
  Transmission Date: 20250115
  Serious: Yes (Hospitalization)
  Sender: ROCHE
  Company Number: US-ROCHE-10000095743

PATIENT
  Age: 79 Year
  Sex: Female
  Weight: 92.53 kg

DRUGS (1)
  1. RITUXAN [Suspect]
     Active Substance: RITUXIMAB
     Indication: Rheumatoid arthritis
     Dosage: LAST DOSE APR/2023?INFUSE 1000 AT DAY 1 AND DAY 15 THEN EVERY 6 MONTHS?DOSE STRENGTH: 500 MG AND 10
     Route: 042
     Dates: start: 2016, end: 202304

REACTIONS (3)
  - COVID-19 [Recovered/Resolved]
  - Pneumonia [Recovered/Resolved]
  - Atrial fibrillation [Not Recovered/Not Resolved]

NARRATIVE: CASE EVENT DATE: 20231017
